FAERS Safety Report 8785056 (Version 3)
Quarter: 2013Q2

REPORT INFORMATION
  Report Type: Spontaneous
  Country: US (occurrence: US)
  Receive Date: 20120914
  Receipt Date: 20130501
  Transmission Date: 20140414
  Serious: No
  Sender: FDA-Public Use
  Company Number: US-ASTRAZENECA-2012SE64800

PATIENT
  Age: 57 Year
  Sex: Female

DRUGS (2)
  1. NEXIUM [Suspect]
     Indication: HIATUS HERNIA
     Route: 048
  2. PRILOSEC [Suspect]
     Route: 048

REACTIONS (10)
  - Aphagia [Unknown]
  - Weight decreased [Unknown]
  - Hypertension [Unknown]
  - Amnesia [Unknown]
  - Drug tolerance increased [Unknown]
  - Pain [Unknown]
  - Gastrooesophageal reflux disease [Unknown]
  - Migraine [Unknown]
  - Vomiting [Unknown]
  - Drug dose omission [Unknown]
